FAERS Safety Report 21239960 (Version 1)
Quarter: 2022Q3

REPORT INFORMATION
  Report Type: Spontaneous
  Country: FR (occurrence: FR)
  Receive Date: 20220822
  Receipt Date: 20220822
  Transmission Date: 20221027
  Serious: Yes (Death, Life-Threatening, Hospitalization, Other)
  Sender: FDA-Public Use
  Company Number: FR-TAKEDA-2022TUS034286

PATIENT
  Age: 70 Year
  Sex: Female

DRUGS (5)
  1. ICATIBANT [Suspect]
     Active Substance: ICATIBANT ACETATE
     Indication: Angioedema
     Dosage: UNK
     Route: 065
  2. ICATIBANT [Suspect]
     Active Substance: ICATIBANT ACETATE
     Indication: Angioedema
     Dosage: UNK
     Route: 065
  3. RAMIPRIL [Suspect]
     Active Substance: RAMIPRIL
     Indication: Peripheral arterial occlusive disease
     Dosage: 5 MILLIGRAM, QD
     Route: 065
  4. IRBESARTAN [Suspect]
     Active Substance: IRBESARTAN
     Indication: Peripheral arterial occlusive disease
     Dosage: 300 MILLIGRAM, QD
     Route: 065
  5. SITAGLIPTIN [Suspect]
     Active Substance: SITAGLIPTIN
     Indication: Type 2 diabetes mellitus
     Dosage: 100 MILLIGRAM, QD
     Route: 065

REACTIONS (7)
  - Drug ineffective [Fatal]
  - Laryngeal oedema [Fatal]
  - Asphyxia [Fatal]
  - Contraindicated product administered [Fatal]
  - Unmasking of previously unidentified disease [Fatal]
  - Angioedema [Fatal]
  - Off label use [Unknown]
